FAERS Safety Report 8115286-X (Version None)
Quarter: 2012Q1

REPORT INFORMATION
  Report Type: 
  Country: None (occurrence: None)
  Receive Date: 20120206
  Receipt Date: 20120125
  Transmission Date: 20120608
  Serious: Yes (Other)
  Sender: FDA-Public Use
  Company Number: CA-JNJFOC-20111203849

PATIENT
  Sex: Female
  Weight: 72 kg

DRUGS (6)
  1. REMICADE [Suspect]
     Route: 042
  2. REMICADE [Suspect]
     Indication: COLITIS ULCERATIVE
     Route: 042
  3. VITAMIN D [Concomitant]
  4. REMICADE [Suspect]
     Route: 042
     Dates: start: 20111130
  5. CALCIUM [Concomitant]
  6. ASCORBIC ACID [Concomitant]

REACTIONS (5)
  - RECTAL HAEMORRHAGE [None]
  - NASOPHARYNGITIS [None]
  - VOMITING [None]
  - HEADACHE [None]
  - SINUS CONGESTION [None]
